FAERS Safety Report 9764506 (Version 1)
Quarter: 2013Q4

REPORT INFORMATION
  Report Type: Report from Study
  Country: US (occurrence: US)
  Receive Date: 20131217
  Receipt Date: 20131217
  Transmission Date: 20140711
  Serious: Yes (Death, Other)
  Sender: FDA-Public Use
  Company Number: US-ROCHE-1320519

PATIENT
  Sex: Male
  Weight: 92.5 kg

DRUGS (24)
  1. XELODA [Suspect]
     Indication: COLON CANCER
     Dosage: (21 DAYS CYCLE, 14 DAYS ON AND 7 DAYS OFF)
     Route: 048
  2. AVASTIN [Suspect]
     Indication: COLON CANCER
     Route: 042
     Dates: start: 20111027, end: 20111027
  3. AVASTIN [Suspect]
     Route: 042
     Dates: start: 20111117, end: 20111117
  4. AVASTIN [Suspect]
     Route: 042
     Dates: start: 20111206, end: 20111206
  5. AVASTIN [Suspect]
     Route: 042
     Dates: start: 20111230, end: 20111230
  6. OXALIPLATIN [Concomitant]
     Route: 042
     Dates: start: 20111027, end: 20111117
  7. OXALIPLATIN [Concomitant]
     Route: 042
     Dates: start: 20111117, end: 20111206
  8. OXALIPLATIN [Concomitant]
     Route: 042
     Dates: start: 20111206, end: 20111230
  9. OXALIPLATIN [Concomitant]
     Route: 042
     Dates: start: 20111230
  10. FERROUS GLUCONATE [Concomitant]
     Route: 048
  11. DOCUSATE SODIUM [Concomitant]
     Dosage: AS REQUIRED
     Route: 048
  12. HYDROCODONE/ACETAMINOPHEN [Concomitant]
     Dosage: 5-500MG AS REQUIRED,QID
     Route: 065
  13. ONDANSETRON [Concomitant]
     Dosage: AS REQUIRED
     Route: 065
  14. PROCHLORPERAZINE MALEATE [Concomitant]
     Dosage: AS REQUIRED
     Route: 065
  15. DEXAMETHASONE [Concomitant]
     Dosage: WITH CHEMOTHERAPY
     Route: 065
  16. CALCIUM GLUCONATE [Concomitant]
     Route: 042
     Dates: start: 20111027
  17. MAGNESIUM SULFATE [Concomitant]
     Route: 042
     Dates: start: 20111027
  18. PALONOSETRON [Concomitant]
     Route: 042
     Dates: start: 20111027
  19. LISINOPRIL [Concomitant]
     Route: 042
  20. ZOLPIDEM TARTRATE [Concomitant]
     Route: 065
  21. LORAZEPAM [Concomitant]
  22. DECADRON [Concomitant]
     Route: 042
     Dates: start: 20111206
  23. DECADRON [Concomitant]
     Route: 042
     Dates: start: 20111206
  24. SODIUM CHLORIDE [Concomitant]
     Route: 042

REACTIONS (18)
  - Metastatic neoplasm [Fatal]
  - Blood pressure increased [Unknown]
  - Fatigue [Unknown]
  - Decreased appetite [Unknown]
  - Oropharyngeal pain [Unknown]
  - Abdominal pain [Unknown]
  - Ocular icterus [Unknown]
  - Back pain [Unknown]
  - Ascites [Unknown]
  - Neuropathy peripheral [Unknown]
  - Constipation [Unknown]
  - Flat affect [Unknown]
  - Depressed mood [Unknown]
  - Abdominal mass [Unknown]
  - Musculoskeletal discomfort [Unknown]
  - Asthenia [Unknown]
  - Hepatomegaly [Unknown]
  - Impaired work ability [Unknown]
